FAERS Safety Report 9764172 (Version 2)
Quarter: 2014Q1

REPORT INFORMATION
  Report Type: Spontaneous
  Country: IT (occurrence: IT)
  Receive Date: 20131216
  Receipt Date: 20140123
  Transmission Date: 20141002
  Serious: Yes (Other)
  Sender: FDA-Public Use
  Company Number: PHHY2013IT146449

PATIENT
  Sex: Female

DRUGS (5)
  1. ZOMETA [Suspect]
     Indication: METASTASES TO BONE
     Dosage: 4 MG, EVERY 21 DAYS
     Route: 042
     Dates: start: 20121222, end: 20130219
  2. AROMASIN [Concomitant]
     Indication: BREAST CANCER
     Dosage: 25 MG, UNK
     Route: 048
  3. NALAPRES [Concomitant]
     Indication: HYPERTENSION
     Dosage: 1 POSOLOGICAL UNIT
     Route: 048
  4. PARLODEL [Concomitant]
     Indication: NEOPLASM MALIGNANT
     Dosage: UNK UKN, UNK
  5. DOSTINEX [Concomitant]
     Indication: NEOPLASM MALIGNANT
     Dosage: UNK UKN, UNK

REACTIONS (1)
  - Osteonecrosis of jaw [Unknown]
